FAERS Safety Report 5739604-2 (Version None)
Quarter: 2008Q2

REPORT INFORMATION
  Report Type: 
  Country: None (occurrence: None)
  Receive Date: 20080515
  Receipt Date: 20080505
  Transmission Date: 20081010
  Serious: Yes (Other)
  Sender: FDA-Public Use
  Company Number: GR-ABBOTT-08P-066-0450363-00

PATIENT
  Age: 17 Year
  Sex: Male

DRUGS (1)
  1. DEPAKINE CHRONOSPHERE GRANULE [Suspect]
     Indication: DRUG USE FOR UNKNOWN INDICATION
     Route: 048
     Dates: start: 20020101

REACTIONS (1)
  - LYMPHOPROLIFERATIVE DISORDER [None]
